FAERS Safety Report 9604751 (Version 1)
Quarter: 2013Q4

REPORT INFORMATION
  Report Type: Spontaneous
  Country: US (occurrence: US)
  Receive Date: 20131008
  Receipt Date: 20131008
  Transmission Date: 20140711
  Serious: Yes (Hospitalization)
  Sender: FDA-Public Use
  Company Number: US-PFIZER INC-2013285347

PATIENT
  Age: 43 Year
  Sex: Male
  Weight: 81.63 kg

DRUGS (1)
  1. RAPAMUNE [Suspect]
     Dosage: 04 MG, 1X/DAY
     Dates: start: 2004

REACTIONS (2)
  - Blood creatinine increased [Unknown]
  - Weight decreased [Unknown]
